FAERS Safety Report 4408485-1 (Version None)
Quarter: 2004Q3

REPORT INFORMATION
  Report Type: 
  Country: None (occurrence: None)
  Receive Date: 20040722
  Receipt Date: 20040713
  Transmission Date: 20050211
  Serious: Yes (Other)
  Sender: FDA-Public Use
  Company Number: STA-AE-04-MTX-302

PATIENT
  Age: 66 Year
  Sex: Male

DRUGS (10)
  1. METHOTREXATE [Suspect]
     Indication: RHEUMATOID ARTHRITIS
     Dosage: 15 MG 1 X PER 1 WK,
  2. ARAVA [Suspect]
     Indication: RHEUMATOID ARTHRITIS
     Dosage: 20 MG 1 X PER 1 DAY, ORAL
     Route: 048
  3. PROSCAR [Concomitant]
  4. PREDNISONE [Concomitant]
  5. AMBIEN [Concomitant]
  6. VICODIN  (HYDROCHLORIDE BITARTRATE) [Concomitant]
  7. FOLIC ACID [Concomitant]
  8. ELAVIL [Concomitant]
  9. ZOLOFT [Concomitant]
  10. FLOMAX [Concomitant]

REACTIONS (5)
  - AXILLARY PAIN [None]
  - B-CELL LYMPHOMA [None]
  - HIDRADENITIS [None]
  - LEUKOPENIA [None]
  - SUBCUTANEOUS ABSCESS [None]
